FAERS Safety Report 22034856 (Version 2)
Quarter: 2023Q1

REPORT INFORMATION
  Report Type: Report from Study
  Country: PL (occurrence: PL)
  Receive Date: 20230224
  Receipt Date: 20230323
  Transmission Date: 20230417
  Serious: Yes (Hospitalization, Other)
  Sender: FDA-Public Use
  Company Number: PL-BRISTOL-MYERS SQUIBB COMPANY-2023-026920

PATIENT
  Sex: Female

DRUGS (16)
  1. OZANIMOD [Suspect]
     Active Substance: OZANIMOD
     Indication: Relapsing multiple sclerosis
     Dosage: FREQUENCY TEXT: NOT PROVIDED
     Route: 048
     Dates: start: 20160326, end: 20210324
  2. EUTHYROX [Concomitant]
     Active Substance: LEVOTHYROXINE SODIUM
     Indication: Hypothyroidism
     Dosage: 25 MICROGRAM
     Route: 048
     Dates: start: 20161120
  3. EUTHYROX [Concomitant]
     Active Substance: LEVOTHYROXINE SODIUM
     Dosage: 75 MICROGRAM
     Route: 048
     Dates: start: 20171111
  4. EUTHYROX [Concomitant]
     Active Substance: LEVOTHYROXINE SODIUM
     Dosage: 50 MICROGRAM
     Route: 048
  5. Luteina [Concomitant]
     Indication: Supplementation therapy
     Route: 048
  6. METFORMIN HYDROCHLORIDE [Concomitant]
     Active Substance: METFORMIN HYDROCHLORIDE
     Indication: Diabetes mellitus
     Dosage: 1000 MILLIGRAM
     Route: 048
     Dates: start: 20190610
  7. METFORMIN HYDROCHLORIDE [Concomitant]
     Active Substance: METFORMIN HYDROCHLORIDE
     Dosage: 1000 MILLIGRAM
     Route: 048
     Dates: start: 20190610
  8. NILOGRIN [Concomitant]
     Indication: Headache
     Dosage: 20 MILLIGRAM
     Route: 048
     Dates: start: 20151218
  9. NILOGRIN [Concomitant]
     Indication: Dizziness
     Dosage: FREQUENCY TEXT: AS NEEDED
     Route: 048
     Dates: start: 20200420
  10. DEXAK [Concomitant]
     Indication: Thyroid neoplasm
     Dosage: FREQUENCY TEXT: UNKNOWN
     Route: 050
     Dates: start: 20210722, end: 20210722
  11. ESTAZOLAM [Concomitant]
     Active Substance: ESTAZOLAM
     Indication: Thyroid neoplasm
     Dosage: FREQUENCY TEXT: UNKNOWN
     Dates: start: 20210722, end: 20210722
  12. METAMIZOLE MAGNESIUM [Concomitant]
     Active Substance: METAMIZOLE MAGNESIUM
     Indication: Thyroid cancer
     Dosage: FREQUENCY TEXT: UNKNOWN
     Dates: start: 20210722, end: 20210722
  13. MIDAZOLAM HYDROCHLORIDE [Concomitant]
     Active Substance: MIDAZOLAM HYDROCHLORIDE
     Indication: Product used for unknown indication
     Dosage: FREQUENCY TEXT: UNKNOWN
     Dates: start: 20210722, end: 20210722
  14. CANNABIDIOL\CANNABIS SATIVA SEED OIL [Concomitant]
     Active Substance: CANNABIDIOL\CANNABIS SATIVA SEED OIL
     Indication: Supplementation therapy
     Dosage: 3 UNITS
     Route: 048
     Dates: start: 20160317
  15. HYDROXYZINE [Concomitant]
     Active Substance: HYDROXYZINE HYDROCHLORIDE
     Indication: Burning sensation
     Dosage: FREQUENCY TEXT: NOT PROVIDED
     Dates: start: 20210913, end: 20210916
  16. OMEPRAZOLE [Concomitant]
     Active Substance: OMEPRAZOLE
     Indication: Burning sensation
     Dosage: FREQUENCY TEXT: NOT PROVIDED
     Dates: start: 20210913, end: 20210916

REACTIONS (1)
  - Thyroid cancer [Recovered/Resolved]

NARRATIVE: CASE EVENT DATE: 20210913
